FAERS Safety Report 12507668 (Version 2)
Quarter: 2016Q3

REPORT INFORMATION
  Report Type: Spontaneous
  Country: FR (occurrence: FR)
  Receive Date: 20160629
  Receipt Date: 20160802
  Transmission Date: 20161109
  Serious: Yes (Hospitalization)
  Sender: FDA-Public Use
  Company Number: FR-VELOXIS PHARMACEUTICALS-1054386

PATIENT
  Age: 44 Year
  Sex: Male

DRUGS (16)
  1. SPECIAFOLDINE [Concomitant]
     Active Substance: FOLIC ACID
  2. EXJADE [Concomitant]
     Active Substance: DEFERASIROX
  3. CORTANCYL [Concomitant]
     Active Substance: PREDNISONE
  4. ENVARSUS XR [Suspect]
     Active Substance: TACROLIMUS
     Indication: PROPHYLAXIS AGAINST TRANSPLANT REJECTION
     Route: 048
     Dates: start: 201602
  5. ADVAGRAF [Concomitant]
     Active Substance: TACROLIMUS
     Dates: end: 201602
  6. AMLOR [Concomitant]
     Active Substance: AMLODIPINE BESYLATE
  7. AVLOCARDYL [Concomitant]
     Active Substance: PROPRANOLOL HYDROCHLORIDE
  8. SOFOSBUVIR [Concomitant]
     Active Substance: SOFOSBUVIR
     Dates: start: 201409
  9. MYFORTIC [Concomitant]
     Active Substance: MYCOPHENOLATE SODIUM
  10. DACLATASVIR. [Concomitant]
     Active Substance: DACLATASVIR
     Dates: start: 201501
  11. KARDEGIC [Concomitant]
     Active Substance: ASPIRIN LYSINE
  12. ZOLPIDEM [Concomitant]
     Active Substance: ZOLPIDEM\ZOLPIDEM TARTRATE
  13. SIKLOS [Concomitant]
     Active Substance: HYDROXYUREA
  14. IXPRIM [Concomitant]
     Active Substance: ACETAMINOPHEN\TRAMADOL HYDROCHLORIDE
  15. HYDREA [Concomitant]
     Active Substance: HYDROXYUREA
  16. ORACILLINE [Concomitant]
     Active Substance: PENICILLIN V

REACTIONS (3)
  - Pulmonary embolism [Recovered/Resolved]
  - Thrombophlebitis superficial [Recovered/Resolved]
  - Deep vein thrombosis [Recovered/Resolved]

NARRATIVE: CASE EVENT DATE: 201603
